FAERS Safety Report 9281166 (Version 4)
Quarter: 2015Q1

REPORT INFORMATION
  Report Type: Report from Study
  Country: US (occurrence: US)
  Receive Date: 20130509
  Receipt Date: 20150317
  Transmission Date: 20150721
  Serious: Yes (Hospitalization)
  Sender: FDA-Public Use
  Company Number: US-ROCHE-1024529

PATIENT
  Age: 0 Day
  Sex: Female
  Weight: 3.63 kg

DRUGS (2)
  1. OMALIZUMAB [Suspect]
     Active Substance: OMALIZUMAB
     Route: 063
     Dates: end: 201111
  2. OMALIZUMAB [Suspect]
     Active Substance: OMALIZUMAB
     Indication: PRODUCT USED FOR UNKNOWN INDICATION
     Dosage: DATE OF MOST RECENT DOSE PRIOR TO AE 14/SEP/2011, LASTR DOSE TAKEN 225 MG
     Route: 064
     Dates: start: 20100922, end: 20110923

REACTIONS (13)
  - Jaundice [Unknown]
  - Exposure during breast feeding [Unknown]
  - Positional plagiocephaly [Recovered/Resolved]
  - Viral upper respiratory tract infection [Unknown]
  - Respiratory syncytial virus infection [Recovered/Resolved]
  - Sepsis neonatal [Recovered/Resolved]
  - Maternal exposure timing unspecified [Unknown]
  - Respiratory disorder [Recovered/Resolved]
  - Ear infection [Unknown]
  - Sinusitis [Unknown]
  - Pneumonia [Unknown]
  - Otitis media [Not Recovered/Not Resolved]
  - Teething [Unknown]

NARRATIVE: CASE EVENT DATE: 20111022
